FAERS Safety Report 9387982 (Version 1)
Quarter: 2013Q3

REPORT INFORMATION
  Report Type: Spontaneous
  Country: KR (occurrence: KR)
  Receive Date: 20130708
  Receipt Date: 20130708
  Transmission Date: 20140515
  Serious: Yes (Other)
  Sender: FDA-Public Use
  Company Number: PHHY2013KR071321

PATIENT
  Sex: Male

DRUGS (2)
  1. TRILEPTAL [Suspect]
     Dosage: 300 MG, UNK
     Route: 048
  2. TRILEPTAL [Suspect]
     Dosage: 600 MG, UNK
     Route: 048

REACTIONS (3)
  - Epilepsy [Unknown]
  - Panic disorder [Unknown]
  - Fatigue [Unknown]
